FAERS Safety Report 7159953-3 (Version None)
Quarter: 2010Q4

REPORT INFORMATION
  Report Type: 
  Country: None (occurrence: None)
  Receive Date: 20101214
  Receipt Date: 20101207
  Transmission Date: 20110411
  Serious: Yes (Other)
  Sender: FDA-Public Use
  Company Number: CA-ABBOTT-10P-028-0628318-00

PATIENT
  Sex: Female
  Weight: 43.13 kg

DRUGS (8)
  1. HUMIRA [Suspect]
     Indication: RHEUMATOID ARTHRITIS
     Route: 058
     Dates: start: 20090921, end: 20100215
  2. SULFASALAZINE [Concomitant]
     Indication: PRODUCT USED FOR UNKNOWN INDICATION
     Route: 048
     Dates: start: 20080101
  3. HYDROXYQUINE [Concomitant]
     Indication: PRODUCT USED FOR UNKNOWN INDICATION
     Dates: start: 20080101
  4. PILOCARPINE [Concomitant]
     Indication: PRODUCT USED FOR UNKNOWN INDICATION
     Route: 048
     Dates: start: 20090101
  5. ISONIAZID [Concomitant]
     Indication: TUBERCULOSIS
     Dates: start: 20090601
  6. VITAMIN B6 [Concomitant]
     Indication: PRODUCT USED FOR UNKNOWN INDICATION
     Route: 048
     Dates: start: 20090601
  7. CLONAZEPAM [Concomitant]
     Indication: INSOMNIA
     Dosage: 0.5MG DAILY
     Route: 048
     Dates: start: 19900101
  8. SALAGEN [Concomitant]
     Indication: SJOGREN'S SYNDROME
     Dosage: 5 MG 3/DAY
     Dates: start: 20090301

REACTIONS (10)
  - ABDOMINAL PAIN UPPER [None]
  - EYE PRURITUS [None]
  - EYE SWELLING [None]
  - HAEMATEMESIS [None]
  - HERPES ZOSTER [None]
  - MALAISE [None]
  - NAUSEA [None]
  - PARALYSIS [None]
  - RASH [None]
  - VOMITING [None]
